FAERS Safety Report 8729671 (Version 2)
Quarter: 2015Q2

REPORT INFORMATION
  Report Type: Report from Study
  Country: US (occurrence: US)
  Receive Date: 20120817
  Receipt Date: 20150623
  Transmission Date: 20150821
  Serious: Yes (Hospitalization)
  Sender: FDA-Public Use
  Company Number: US-ROCHE-1101449

PATIENT
  Age: 55 Year
  Sex: Male

DRUGS (3)
  1. ACTIVASE [Suspect]
     Active Substance: ALTEPLASE
     Route: 040
     Dates: start: 19910712
  2. ACTIVASE [Suspect]
     Active Substance: ALTEPLASE
     Indication: ACUTE MYOCARDIAL INFARCTION
     Dosage: 40 MG OVER 2 HRS (AT 20 MG/HR)
     Route: 042
     Dates: start: 19910713
  3. ACTIVASE [Suspect]
     Active Substance: ALTEPLASE
     Dosage: 50 MG OVER 1 HR
     Route: 042
     Dates: start: 19910712

REACTIONS (4)
  - Ventricular tachycardia [Unknown]
  - Urinary retention [Unknown]
  - Dyspnoea [Unknown]
  - Vomiting [Unknown]
